FAERS Safety Report 5878694-3 (Version None)
Quarter: 2008Q3

REPORT INFORMATION
  Report Type: 
  Country: None (occurrence: None)
  Receive Date: 20080912
  Receipt Date: 20080903
  Transmission Date: 20090109
  Serious: Yes (Life-Threatening, Hospitalization, Other)
  Sender: FDA-Public Use
  Company Number: US-JNJFOC-20070505652

PATIENT
  Sex: Female
  Weight: 55.79 kg

DRUGS (21)
  1. TMC125 [Suspect]
     Route: 048
  2. TMC125 [Suspect]
     Indication: HIV INFECTION
     Dosage: TEMPORARILY STOPPED
     Route: 048
  3. PREZISTA [Suspect]
     Route: 048
  4. PREZISTA [Suspect]
     Indication: HIV INFECTION
     Dosage: TEMPORARILY STOPPED
     Route: 048
  5. NORVIR [Suspect]
     Indication: HIV INFECTION
     Route: 048
  6. DILTIAZEM HCL [Suspect]
     Indication: DRUG USE FOR UNKNOWN INDICATION
     Route: 065
  7. METOPROLOL TARTRATE [Suspect]
     Indication: DRUG USE FOR UNKNOWN INDICATION
     Route: 065
  8. TRUVADA [Concomitant]
     Indication: HIV INFECTION
     Route: 048
  9. MK-0518 [Concomitant]
     Indication: HIV INFECTION
     Route: 048
  10. FLUCONAZOLE [Concomitant]
     Route: 065
  11. HYDROCHLOROTHIAZIDE [Concomitant]
     Route: 065
  12. DESLORATIDINE [Concomitant]
     Route: 065
  13. TRIMETH-SULFA DS [Concomitant]
     Route: 065
  14. ESCITALOPRAM [Concomitant]
     Route: 065
  15. ACYCLOVIR [Concomitant]
     Route: 065
  16. AZITHROMYCIN [Concomitant]
     Route: 065
  17. LEVOTHYROXINE SODIUM [Concomitant]
     Route: 065
  18. FUROSEMIDE [Concomitant]
     Route: 065
  19. FERROUS SULFATE TAB [Concomitant]
     Route: 065
  20. QUININE SULFATE [Concomitant]
     Route: 065
  21. LISINOPRIL [Concomitant]
     Route: 065

REACTIONS (3)
  - BRADYCARDIA [None]
  - LACTIC ACIDOSIS [None]
  - RENAL FAILURE ACUTE [None]
